FAERS Safety Report 16649640 (Version 1)
Quarter: 2019Q3

REPORT INFORMATION
  Report Type: Spontaneous
  Country: SE (occurrence: SE)
  Receive Date: 20190730
  Receipt Date: 20190730
  Transmission Date: 20191004
  Serious: Yes (Life-Threatening, Hospitalization, Disabling)
  Sender: FDA-Public Use
  Company Number: SE-ELI_LILLY_AND_COMPANY-SE201907014332

PATIENT
  Age: 14 Year
  Sex: Male
  Weight: 55 kg

DRUGS (14)
  1. OLANZAPINE. [Suspect]
     Active Substance: OLANZAPINE
     Dosage: IF NEEDED, TAKE EXTRA 2.5 MG OF OLANZAPINE
     Dates: start: 20160703
  2. MELATONIN [Concomitant]
     Active Substance: MELATONIN
     Dosage: UNK
     Dates: start: 20160620, end: 20161220
  3. NOZINAN [LEVOMEPROMAZINE MALEATE] [Concomitant]
     Active Substance: LEVOMEPROMAZINE MALEATE
     Dates: start: 20160620, end: 20160701
  4. OLANZAPINE. [Suspect]
     Active Substance: OLANZAPINE
     Indication: PSYCHOTIC SYMPTOM
     Dosage: UNK
     Dates: start: 20160702, end: 20161224
  5. OLANZAPINE. [Suspect]
     Active Substance: OLANZAPINE
     Dosage: UNK
     Dates: start: 20161229, end: 20170102
  6. MELATONIN [Concomitant]
     Active Substance: MELATONIN
  7. OLANZAPINE. [Suspect]
     Active Substance: OLANZAPINE
     Dosage: UNK
     Dates: start: 20161225, end: 20161228
  8. NOZINAN [LEVOMEPROMAZINE MALEATE] [Concomitant]
     Active Substance: LEVOMEPROMAZINE MALEATE
     Dosage: UNK
     Dates: start: 20160702, end: 20160703
  9. OLANZAPINE. [Suspect]
     Active Substance: OLANZAPINE
     Dosage: UNK UNK, UNKNOWN
     Route: 065
     Dates: start: 20170103, end: 20170129
  10. ABILIFY [Concomitant]
     Active Substance: ARIPIPRAZOLE
     Dosage: UNK
     Dates: start: 2019
  11. ABILIFY [Concomitant]
     Active Substance: ARIPIPRAZOLE
     Dates: start: 20161221, end: 2019
  12. RISPERIDONE. [Concomitant]
     Active Substance: RISPERIDONE
     Dates: start: 20160628, end: 20160703
  13. THERALEN [Concomitant]
     Active Substance: TRIMEPRAZINE
     Dosage: 0.25 ML IF NEEDED, MAX 1 ML PER DAY
  14. STESOLID [Concomitant]
     Active Substance: DIAZEPAM
     Dosage: 1 TABLET, IF NEEDED, A MAXIMUM OF 2 TABLETS PER DAY.

REACTIONS (7)
  - Musculoskeletal stiffness [Recovered/Resolved with Sequelae]
  - Mydriasis [Recovered/Resolved with Sequelae]
  - Weight increased [Recovered/Resolved]
  - Back disorder [Recovered/Resolved with Sequelae]
  - Staring [Recovered/Resolved with Sequelae]
  - Confusional state [Recovered/Resolved with Sequelae]
  - Product prescribing error [Recovered/Resolved with Sequelae]

NARRATIVE: CASE EVENT DATE: 201607
